FAERS Safety Report 12710330 (Version 1)
Quarter: 2016Q3

REPORT INFORMATION
  Report Type: Spontaneous
  Country: BE (occurrence: BE)
  Receive Date: 20160902
  Receipt Date: 20160902
  Transmission Date: 20161109
  Serious: Yes (Other)
  Sender: FDA-Public Use
  Company Number: BE-AMGEN-BELSP2016081095

PATIENT
  Age: 50 Year
  Sex: Female
  Weight: 62 kg

DRUGS (4)
  1. STEOVIT D3 [Concomitant]
     Active Substance: CALCIUM CARBONATE\CHOLECALCIFEROL
     Indication: PROPHYLAXIS
     Dosage: 1000 MG (800IU), DAILY
     Route: 058
     Dates: start: 201503
  2. ENBREL [Suspect]
     Active Substance: ETANERCEPT
     Indication: RHEUMATOID ARTHRITIS
     Dosage: 50 MG, WEEKLY
     Route: 058
     Dates: start: 20151110
  3. LEDERTREXATE [Concomitant]
     Active Substance: METHOTREXATE
     Indication: POLYARTHRITIS
     Dosage: 10 MG, WEEKLY
     Route: 048
     Dates: start: 201201
  4. METHYLPREDNISOLONE. [Concomitant]
     Active Substance: METHYLPREDNISOLONE
     Indication: POLYARTHRITIS
     Dosage: 4 MG, DAILY
     Route: 048
     Dates: start: 201112

REACTIONS (3)
  - Sarcoidosis [Recovering/Resolving]
  - Ganglioneuroma [Unknown]
  - Lymphadenopathy [Unknown]

NARRATIVE: CASE EVENT DATE: 20160401
